FAERS Safety Report 14458225 (Version 3)
Quarter: 2019Q2

REPORT INFORMATION
  Report Type: Report from Study
  Country: JP (occurrence: JP)
  Receive Date: 20180130
  Receipt Date: 20190502
  Transmission Date: 20190711
  Serious: Yes (Hospitalization, Other)
  Sender: FDA-Public Use
  Company Number: JP-ACTELION-A-CH2018-166278

PATIENT
  Age: 59 Year
  Sex: Male

DRUGS (18)
  1. ADCIRCA [Suspect]
     Active Substance: TADALAFIL
     Indication: SYSTEMIC SCLERODERMA
     Dosage: 20 MG, QD
     Route: 048
     Dates: start: 20170817, end: 20170823
  2. TOCOPHERYL NICOTINATE [Concomitant]
     Active Substance: TOCOPHERYL NICOTINATE, D-.ALPHA.
  3. TRACLEER [Suspect]
     Active Substance: BOSENTAN
     Dosage: 125 MG, QD
     Route: 048
     Dates: start: 20161124
  4. RIMATIL [Suspect]
     Active Substance: BUCILLAMINE
     Indication: RHEUMATOID ARTHRITIS
     Dosage: 100 MG, QD
     Route: 048
     Dates: start: 20170729
  5. TRAMCET [Concomitant]
     Active Substance: ACETAMINOPHEN\TRAMADOL
  6. BAYASPIRIN [Concomitant]
     Active Substance: ASPIRIN
  7. PARIET [Concomitant]
     Active Substance: RABEPRAZOLE SODIUM
  8. BERAPROST SODIUM [Concomitant]
     Active Substance: BERAPROST SODIUM
  9. LIMAPROST ALFADEX [Concomitant]
     Active Substance: LIMAPROST
  10. PREDNISOLONE. [Concomitant]
     Active Substance: PREDNISOLONE
  11. CILOSTAZOL. [Concomitant]
     Active Substance: CILOSTAZOL
  12. NU-LOTAN [Concomitant]
     Active Substance: LOSARTAN POTASSIUM
  13. CRESTOR [Concomitant]
     Active Substance: ROSUVASTATIN CALCIUM
  14. TRACLEER [Suspect]
     Active Substance: BOSENTAN
     Indication: SCLERODERMA ASSOCIATED DIGITAL ULCER
     Dosage: 62.5 MG, BID
     Route: 048
     Dates: start: 20160929, end: 20161029
  15. TRACLEER [Suspect]
     Active Substance: BOSENTAN
     Dosage: 187.5 MG, QD
     Route: 048
     Dates: start: 20161030, end: 20161123
  16. ALFACALCIDOL [Concomitant]
     Active Substance: ALFACALCIDOL
  17. RECALBON [Concomitant]
     Active Substance: MINODRONIC ACID
  18. CELECOX [Concomitant]
     Active Substance: CELECOXIB

REACTIONS (16)
  - Drug eruption [Recovering/Resolving]
  - Synovitis [Recovering/Resolving]
  - Arterial disorder [Unknown]
  - Condition aggravated [Recovering/Resolving]
  - Anaemia [Not Recovered/Not Resolved]
  - Cerebral infarction [Unknown]
  - Arthralgia [Recovering/Resolving]
  - Peroneal nerve palsy [Not Recovered/Not Resolved]
  - Scleroderma associated digital ulcer [Recovering/Resolving]
  - Spinal osteoarthritis [Not Recovered/Not Resolved]
  - Limb discomfort [Not Recovered/Not Resolved]
  - Rheumatoid arthritis [Recovering/Resolving]
  - Cellulitis [Recovering/Resolving]
  - Hepatic function abnormal [Recovered/Resolved]
  - Aspartate aminotransferase increased [Recovered/Resolved]
  - Pulmonary hypertension [Unknown]

NARRATIVE: CASE EVENT DATE: 20170316
